FAERS Safety Report 8548448-8 (Version None)
Quarter: 2012Q3

REPORT INFORMATION
  Report Type: 
  Country: None (occurrence: None)
  Receive Date: 20120730
  Receipt Date: 20120717
  Transmission Date: 20120928
  Serious: No
  Sender: FDA-Public Use
  Company Number: US-009507513-2012SP033698

PATIENT

DRUGS (2)
  1. IMPLANON [Suspect]
     Dosage: 1 DF, UNK
  2. IMPLANON [Suspect]
     Indication: CONTRACEPTION
     Dosage: 1 ROD
     Route: 059
     Dates: start: 20120208

REACTIONS (2)
  - HYPOAESTHESIA [None]
  - IMPLANT SITE PAIN [None]
